FAERS Safety Report 6091429-7 (Version None)
Quarter: 2009Q1

REPORT INFORMATION
  Report Type: 
  Country: None (occurrence: None)
  Receive Date: 20090219
  Receipt Date: 20090219
  Transmission Date: 20090719
  Serious: Yes (Other)
  Sender: FDA-Public Use
  Company Number: None

PATIENT
  Sex: Female
  Weight: 63.5036 kg

DRUGS (2)
  1. NATA TAB FA ETHEX [Suspect]
     Indication: LACTATION DISORDER
     Dosage: 1 TAB DAILY PO
     Route: 048
     Dates: start: 20070801
  2. NATA TAB FA ETHEX [Suspect]
     Indication: PREGNANCY
     Dosage: 1 TAB DAILY PO
     Route: 048
     Dates: start: 20070801

REACTIONS (7)
  - CONTUSION [None]
  - FALL [None]
  - IMPAIRED WORK ABILITY [None]
  - NAUSEA [None]
  - PRODUCT QUALITY ISSUE [None]
  - SYNCOPE [None]
  - VOMITING [None]
